FAERS Safety Report 5069566-5 (Version None)
Quarter: 2006Q3

REPORT INFORMATION
  Report Type: 
  Country: None (occurrence: None)
  Receive Date: 20060731
  Receipt Date: 20060712
  Transmission Date: 20061208
  Serious: Yes (Other)
  Sender: FDA-Public Use
  Company Number: CAN-2006-0000324

PATIENT
  Sex: Male

DRUGS (5)
  1. OXYCODONE HCL [Suspect]
     Dosage: ORAL
     Route: 048
  2. MORPHINE SULFATE [Suspect]
     Dosage: ORAL
     Route: 048
  3. CODEINE CONTIN TABLETS(CODEINE) PROLONGED-RELEASE TABLETS [Suspect]
     Indication: BACK PAIN
     Dosage: ORAL
     Route: 048
  4. CODEINE (CODEINE) OTHER [Suspect]
     Dosage: ORAL
     Route: 048
  5. ACETAMINOPHEN [Concomitant]

REACTIONS (4)
  - DEPRESSED LEVEL OF CONSCIOUSNESS [None]
  - DRUG INEFFECTIVE [None]
  - DYSPNOEA [None]
  - FATIGUE [None]
